FAERS Safety Report 14363322 (Version 2)
Quarter: 2018Q1

REPORT INFORMATION
  Report Type: Spontaneous
  Country: US (occurrence: US)
  Receive Date: 20180108
  Receipt Date: 20180119
  Transmission Date: 20180509
  Serious: No
  Sender: FDA-Public Use
  Company Number: US-VIIV HEALTHCARE LIMITED-US2018GSK001424

PATIENT
  Sex: Female

DRUGS (4)
  1. KALETRA [Suspect]
     Active Substance: LOPINAVIR\RITONAVIR
  2. EPIVIR [Suspect]
     Active Substance: LAMIVUDINE
     Indication: HIV INFECTION
     Dosage: 150 MG, UNK
  3. NORVIR [Suspect]
     Active Substance: RITONAVIR
  4. REYATAZ [Suspect]
     Active Substance: ATAZANAVIR SULFATE

REACTIONS (3)
  - Hepatic enzyme increased [Unknown]
  - Liver disorder [Unknown]
  - Drug interaction [Unknown]
